FAERS Safety Report 7824100-9 (Version None)
Quarter: 2011Q4

REPORT INFORMATION
  Report Type: 
  Country: None (occurrence: None)
  Receive Date: 20111019
  Receipt Date: 20111017
  Transmission Date: 20120403
  Serious: Yes (Death)
  Sender: FDA-Public Use
  Company Number: PHEH2011US06517

PATIENT
  Sex: Female
  Weight: 49.433 kg

DRUGS (2)
  1. TOBI [Suspect]
     Dosage: UNK
     Dates: start: 20110705
  2. TOBI [Suspect]
     Indication: CYSTIC FIBROSIS
     Dosage: 300 MG, Q12H
     Dates: start: 20100831

REACTIONS (1)
  - DEATH [None]
